FAERS Safety Report 6271833-4 (Version None)
Quarter: 2009Q3

REPORT INFORMATION
  Report Type: 
  Country: None (occurrence: None)
  Receive Date: 20090717
  Receipt Date: 20090715
  Transmission Date: 20100115
  Serious: No
  Sender: FDA-Public Use
  Company Number: US-AMGEN-US342218

PATIENT
  Sex: Male
  Weight: 95.3 kg

DRUGS (1)
  1. NPLATE [Suspect]
     Indication: IDIOPATHIC THROMBOCYTOPENIC PURPURA
     Route: 058
     Dates: start: 20081121, end: 20090424

REACTIONS (4)
  - ARTHRALGIA [None]
  - PAIN IN EXTREMITY [None]
  - PLATELET COUNT ABNORMAL [None]
  - SKIN CANCER [None]
